FAERS Safety Report 6404964-6 (Version None)
Quarter: 2009Q4

REPORT INFORMATION
  Report Type: 
  Country: None (occurrence: None)
  Receive Date: 20091019
  Receipt Date: 20091008
  Transmission Date: 20100525
  Serious: Yes (Life-Threatening, Hospitalization)
  Sender: FDA-Public Use
  Company Number: FR-JNJFOC-20091003745

PATIENT
  Age: 42 Year
  Sex: Female

DRUGS (6)
  1. REMICADE [Suspect]
     Dosage: 14TH INFUSION
     Route: 042
     Dates: start: 20070921, end: 20081006
  2. REMICADE [Suspect]
     Indication: ANKYLOSING SPONDYLITIS
     Route: 042
     Dates: start: 20070921, end: 20081006
  3. RHEUMATREX [Suspect]
  4. RHEUMATREX [Suspect]
     Indication: ANKYLOSING SPONDYLITIS
  5. BI-PROFENID [Suspect]
     Indication: ANKYLOSING SPONDYLITIS
     Route: 048
  6. METHOTREXATE [Suspect]
     Indication: ANKYLOSING SPONDYLITIS

REACTIONS (2)
  - OVARIAN CANCER [None]
  - SIGMOIDITIS [None]
